FAERS Safety Report 9520750 (Version 1)
Quarter: 2013Q1

REPORT INFORMATION
  Report Type: Spontaneous
  Country: US (occurrence: None)
  Receive Date: 20130305
  Receipt Date: 20130305
  Transmission Date: 20140127
  Serious: Yes (Hospitalization)
  Sender: FDA-Public Use
  Company Number: 163-21880-12073287

PATIENT
  Age: 82 Year
  Sex: Female
  Weight: 81.65 kg

DRUGS (12)
  1. REVLIMID [Suspect]
     Indication: PLASMA CELL MYELOMA
     Dosage: 10 MG, 14 IN 21 D, PO
     Route: 048
     Dates: start: 20110202
  2. ADVAIR (SERETIDE MITE) (UNKNOWN) [Concomitant]
  3. SPECTRAVITE (MULTIVITAMINS) (UNKNOWN) [Concomitant]
  4. CALCIUM (CALCIUM) (UNKNOWN) [Concomitant]
  5. VELCADE [Concomitant]
  6. VITAMIN D (ERGOCALCIFEROL) (UNKNOWN) [Concomitant]
  7. LEVOTHYROXINE (LEVOTHYROXINE) (UNKNOWN) [Concomitant]
  8. WARFARIN (WARFARIN) (UNKNOWN) [Concomitant]
  9. CARTIA (ACETYLSALICYLIC ACID) (UNKNOWN) [Concomitant]
  10. DEXAMETHASONE (DEXAMETHASONE) (UNKNOWN) [Concomitant]
  11. FAMCICLOVIR (FAMCICLOVIR) (UNKNOWN) [Concomitant]
  12. FERROUS SULFATE (FERROUS SULFATE) (UNKNOWN) [Concomitant]

REACTIONS (1)
  - Clostridium difficile colitis [None]
